FAERS Safety Report 11825838 (Version 16)
Quarter: 2018Q2

REPORT INFORMATION
  Report Type: Spontaneous
  Country: GB (occurrence: GB)
  Receive Date: 20151211
  Receipt Date: 20180622
  Transmission Date: 20180711
  Serious: Yes (Other)
  Sender: FDA-Public Use
  Company Number: GB-009507513-1512GBR004691

PATIENT
  Age: 67 Year
  Sex: Female
  Weight: 62.13 kg

DRUGS (5)
  1. OVESTIN [Suspect]
     Active Substance: ESTRIOL
     Indication: PREOPERATIVE CARE
     Dosage: 1 MG ESTRIOL IN 1G CREAM
     Route: 061
     Dates: start: 20151020, end: 20151126
  2. SYSTANE (HYPROMELLOSE 2910 (4000 MPA.S)) [Concomitant]
     Active Substance: HYPROMELLOSE 2910 (4000 MPA.S)
     Indication: DRY EYE
     Dosage: UNKNOWN, OTHER OPTHAMOLOGICAL AND OTOLOGICAL PREPARATIONS
     Route: 065
  3. COSOPT [Concomitant]
     Active Substance: DORZOLAMIDE HYDROCHLORIDE\TIMOLOL MALEATE
     Indication: PRODUCT USED FOR UNKNOWN INDICATION
     Dosage: UNK
     Route: 065
  4. LATANOPROST. [Concomitant]
     Active Substance: LATANOPROST
     Indication: PRODUCT USED FOR UNKNOWN INDICATION
     Dosage: UNK
     Route: 047
  5. BETAMETHASONE VALERATE. [Suspect]
     Active Substance: BETAMETHASONE VALERATE
     Indication: GENITAL PAIN
     Dosage: 1 FINGERTIP UNIT
     Route: 061
     Dates: start: 20151127, end: 20151127

REACTIONS (2)
  - Genital pain [Not Recovered/Not Resolved]
  - Genital burning sensation [Not Recovered/Not Resolved]

NARRATIVE: CASE EVENT DATE: 20151020
